FAERS Safety Report 24060785 (Version 2)
Quarter: 2024Q3

REPORT INFORMATION
  Report Type: Spontaneous
  Country: US (occurrence: US)
  Receive Date: 20240708
  Receipt Date: 20240715
  Transmission Date: 20241017
  Serious: Yes (Hospitalization)
  Sender: ORGANON
  Company Number: US-ORGANON-O2406USA002720

PATIENT
  Age: 75 Year
  Sex: Male
  Weight: 96.7 kg

DRUGS (7)
  1. HYZAAR [Suspect]
     Active Substance: HYDROCHLOROTHIAZIDE\LOSARTAN POTASSIUM
     Indication: Hypertension
     Dosage: UNK
     Route: 048
     Dates: start: 20240525, end: 20240610
  2. DOCETAXEL [Suspect]
     Active Substance: DOCETAXEL\DOCETAXEL ANHYDROUS
     Indication: Hormone-refractory prostate cancer
     Dosage: 75 MILLIGRAM/SQ. METER, Q3W
     Route: 042
     Dates: start: 20240408, end: 20240408
  3. DOCETAXEL [Suspect]
     Active Substance: DOCETAXEL\DOCETAXEL ANHYDROUS
     Dosage: 75 MILLIGRAM/SQ. METER, Q3W
     Route: 042
     Dates: start: 20240610, end: 20240610
  4. PREDNISONE [Suspect]
     Active Substance: PREDNISONE
     Indication: Hormone-refractory prostate cancer
     Dosage: 10 MILLIGRAM, BID
     Route: 048
     Dates: start: 20240408, end: 20240408
  5. PREDNISONE [Suspect]
     Active Substance: PREDNISONE
     Dosage: 5 MILLIGRAM, BID
     Route: 048
     Dates: start: 20240416, end: 20240416
  6. AMLODIPINE [Concomitant]
     Active Substance: AMLODIPINE BESYLATE
     Indication: Hypertension
     Dosage: UNK
     Dates: start: 20240523, end: 20240616
  7. CARVEDILOL [Concomitant]
     Active Substance: CARVEDILOL
     Indication: Sinus tachycardia
     Dosage: UNK
     Dates: start: 20240525, end: 20240616

REACTIONS (1)
  - Orthostatic hypotension [Recovered/Resolved]

NARRATIVE: CASE EVENT DATE: 20240616
